FAERS Safety Report 8950532 (Version 2)
Quarter: 2012Q4

REPORT INFORMATION
  Report Type: 
  Country: US (occurrence: US)
  Receive Date: 20121207
  Receipt Date: 20121218
  Transmission Date: 20130627
  Serious: Yes (Hospitalization)
  Sender: FDA-Public Use
  Company Number: US-JNJFOC-20121200177

PATIENT
  Age: 59 Year
  Sex: Female
  Weight: 64.41 kg

DRUGS (4)
  1. ZYRTEC IR [Suspect]
     Indication: HYPERSENSITIVITY
     Route: 048
  2. ZYRTEC IR [Suspect]
     Indication: HYPERSENSITIVITY
     Dosage: for 3 months
     Route: 048
  3. ZYRTEC IR [Suspect]
     Indication: HYPERSENSITIVITY
     Route: 048
     Dates: start: 20071130
  4. HAWTHORN [Concomitant]
     Indication: COUGH
     Route: 065
     Dates: start: 20121128

REACTIONS (4)
  - Blood pressure increased [Not Recovered/Not Resolved]
  - Cough [Not Recovered/Not Resolved]
  - Dry mouth [Not Recovered/Not Resolved]
  - Overdose [Unknown]
